FAERS Safety Report 17573570 (Version 1)
Quarter: 2020Q1

REPORT INFORMATION
  Report Type: Report from Study
  Country: CA (occurrence: CA)
  Receive Date: 20200323
  Receipt Date: 20200323
  Transmission Date: 20200409
  Serious: Yes (Congenital Anomaly)
  Sender: FDA-Public Use
  Company Number: CA-JNJFOC-20200320678

PATIENT
  Sex: Male

DRUGS (2)
  1. REMICADE [Suspect]
     Active Substance: INFLIXIMAB
     Indication: RHEUMATOID ARTHRITIS
     Dosage: THE PATIENT HAD A BREAK FROM INFLIXIMAB INFUSION FROM AUG-2006 TO JAN-2008.?PATERNAL DOSAGE
     Route: 065
     Dates: start: 20030619, end: 200608
  2. REMICADE [Suspect]
     Active Substance: INFLIXIMAB
     Dosage: THE PATIENT HAD A BREAK FROM INFLIXIMAB INFUSION FROM AUG-2006 TO JAN-2008.?PATERNAL DOSAGE
     Route: 065
     Dates: start: 200801

REACTIONS (2)
  - Foetal exposure during pregnancy [Unknown]
  - Congenital anomaly [Unknown]
